FAERS Safety Report 14871311 (Version 3)
Quarter: 2018Q2

REPORT INFORMATION
  Report Type: Report from Study
  Country: CA (occurrence: CA)
  Receive Date: 20180509
  Receipt Date: 20180622
  Transmission Date: 20180711
  Serious: Yes (Death)
  Sender: FDA-Public Use
  Company Number: CA-HLSUS-2018-CA-000736

PATIENT
  Age: 88 Year
  Sex: Male

DRUGS (3)
  1. CLOZARIL [Suspect]
     Active Substance: CLOZAPINE
     Indication: PSYCHOTIC DISORDER
     Dosage: 25MG DAILY BEDTIME
     Route: 048
     Dates: start: 20180327, end: 20180411
  2. LORAZEPAM. [Concomitant]
     Active Substance: LORAZEPAM
     Indication: DEPRESSION
     Dosage: 0.5 MG
     Route: 048
  3. DULOXETINE. [Concomitant]
     Active Substance: DULOXETINE
     Indication: DEPRESSION
     Dosage: 60 MG
     Route: 048

REACTIONS (6)
  - Lethargy [Unknown]
  - Somnolence [Unknown]
  - Pneumonia aspiration [Fatal]
  - Dementia with Lewy bodies [Unknown]
  - White blood cell count increased [Unknown]
  - Delirium [Unknown]

NARRATIVE: CASE EVENT DATE: 20180410
